FAERS Safety Report 9962885 (Version 2)
Quarter: 2014Q1

REPORT INFORMATION
  Report Type: Report from Study
  Country: US (occurrence: US)
  Receive Date: 20140305
  Receipt Date: 20140305
  Transmission Date: 20141002
  Serious: No
  Sender: FDA-Public Use
  Company Number: US-ABBVIE-13P-163-1103911-00

PATIENT
  Age: 54 Year
  Sex: Female

DRUGS (9)
  1. HUMIRA [Suspect]
     Indication: PSORIATIC ARTHROPATHY
     Dates: start: 201204, end: 201306
  2. HUMIRA [Suspect]
     Dates: start: 20130712
  3. METHOTREXATE [Concomitant]
     Indication: PRODUCT USED FOR UNKNOWN INDICATION
  4. VITAMIN D [Concomitant]
     Indication: VITAMIN D DEFICIENCY
  5. SIMVASTATIN [Concomitant]
     Indication: BLOOD CHOLESTEROL INCREASED
     Dosage: DAILY
  6. METOPROLOL [Concomitant]
     Indication: HYPERTENSION
     Dosage: DAILY
  7. ZOLPIDEM [Concomitant]
     Indication: INSOMNIA
  8. DIAZEPAM [Concomitant]
     Indication: ANXIETY
  9. HYDROCODONE [Concomitant]
     Indication: PAIN

REACTIONS (3)
  - Infected bites [Recovered/Resolved]
  - Oral herpes [Recovered/Resolved]
  - Injection site pain [Unknown]
